FAERS Safety Report 11436637 (Version 1)
Quarter: 2015Q3

REPORT INFORMATION
  Report Type: Spontaneous
  Country: US (occurrence: US)
  Receive Date: 20150821
  Receipt Date: 20150821
  Transmission Date: 20151125
  Serious: No
  Sender: FDA-Public Use
  Company Number: US-ELI_LILLY_AND_COMPANY-US201404002924

PATIENT
  Sex: Male

DRUGS (1)
  1. HUMULIN 70/30 [Suspect]
     Active Substance: INSULIN HUMAN
     Indication: TYPE 2 DIABETES MELLITUS
     Dosage: 20 U, UNK
     Route: 065
     Dates: start: 2013

REACTIONS (4)
  - Visual acuity reduced [Unknown]
  - Blood glucose decreased [Unknown]
  - Blood glucose increased [Unknown]
  - Underdose [Unknown]
